FAERS Safety Report 15980667 (Version 2)
Quarter: 2019Q1

REPORT INFORMATION
  Report Type: Spontaneous
  Country: HU (occurrence: HU)
  Receive Date: 20190219
  Receipt Date: 20190222
  Transmission Date: 20190418
  Serious: Yes (Other)
  Sender: FDA-Public Use
  Company Number: PHHY2019HU037025

PATIENT
  Age: 5 Year
  Sex: Female

DRUGS (18)
  1. AZATHIOPRINE. [Suspect]
     Active Substance: AZATHIOPRINE
     Indication: THROMBOCYTOPENIA
     Dosage: UNK
     Route: 065
     Dates: start: 201406
  2. AZATHIOPRINE. [Suspect]
     Active Substance: AZATHIOPRINE
     Indication: EVANS SYNDROME
  3. CICLOSPORIN A [Suspect]
     Active Substance: CYCLOSPORINE
     Indication: PRODUCT USED FOR UNKNOWN INDICATION
     Dosage: UNK
     Route: 065
     Dates: start: 201303
  4. 6-MP [Concomitant]
     Active Substance: MERCAPTOPURINE
     Dosage: UNK
     Route: 065
     Dates: start: 201411, end: 201502
  5. 6-MP [Concomitant]
     Active Substance: MERCAPTOPURINE
     Dosage: UNK
     Route: 065
     Dates: start: 201601
  6. 6-MP [Concomitant]
     Active Substance: MERCAPTOPURINE
     Dosage: 60 MG/M2, UNK
     Route: 065
     Dates: start: 20181231
  7. RITUXIMAB. [Suspect]
     Active Substance: RITUXIMAB
     Indication: PRODUCT USED FOR UNKNOWN INDICATION
     Dosage: 4X
     Route: 065
     Dates: start: 201411, end: 201502
  8. REVOLADE [Suspect]
     Active Substance: ELTROMBOPAG
     Dosage: 37.5 MG, UNK
     Route: 065
     Dates: start: 201801
  9. 6-MP [Concomitant]
     Active Substance: MERCAPTOPURINE
     Dosage: 12 MG, UNK
     Route: 065
  10. 6-MP [Concomitant]
     Active Substance: MERCAPTOPURINE
     Indication: PRODUCT USED FOR UNKNOWN INDICATION
     Dosage: UNK
     Route: 065
     Dates: start: 201303
  11. 6-MP [Concomitant]
     Active Substance: MERCAPTOPURINE
     Dosage: UNK
     Route: 065
     Dates: start: 201604, end: 201710
  12. RITUXIMAB. [Suspect]
     Active Substance: RITUXIMAB
     Dosage: 1X
     Route: 065
     Dates: start: 201601
  13. ROMIPLOSTIM [Concomitant]
     Active Substance: ROMIPLOSTIM
     Indication: PRODUCT USED FOR UNKNOWN INDICATION
     Dosage: UNK
     Route: 065
     Dates: start: 201510, end: 201511
  14. 6-MP [Concomitant]
     Active Substance: MERCAPTOPURINE
     Dosage: 100 MG/M2, 3X
     Route: 065
     Dates: start: 201801
  15. IMMUNOGLOBULIN I.V [Concomitant]
     Active Substance: HUMAN IMMUNOGLOBULIN G
     Indication: HAEMORRHAGE
     Dosage: UNK
     Route: 042
     Dates: start: 2015
  16. REVOLADE [Suspect]
     Active Substance: ELTROMBOPAG
     Indication: IMMUNE THROMBOCYTOPENIC PURPURA
     Dosage: 25 MG, UNK
     Route: 065
     Dates: start: 201710
  17. 6-MP [Concomitant]
     Active Substance: MERCAPTOPURINE
     Dosage: 16 MG, UNK
     Route: 065
     Dates: start: 201710
  18. IMMUNOGLOBULIN I.V [Concomitant]
     Active Substance: HUMAN IMMUNOGLOBULIN G
     Dosage: UNK
     Dates: start: 2017

REACTIONS (11)
  - Viral infection [Unknown]
  - Megaloblasts increased [Unknown]
  - Proteinuria [Not Recovered/Not Resolved]
  - Oedema [Unknown]
  - Thrombocytopenia [Unknown]
  - Drug ineffective [Unknown]
  - Cytomegalovirus test positive [Unknown]
  - Aplastic anaemia [Unknown]
  - Myelodysplastic syndrome [Unknown]
  - Nephrotic syndrome [Not Recovered/Not Resolved]
  - Mucosal haemorrhage [Unknown]

NARRATIVE: CASE EVENT DATE: 201801
